FAERS Safety Report 14061568 (Version 2)
Quarter: 2017Q4

REPORT INFORMATION
  Report Type: Spontaneous
  Country: DE (occurrence: DE)
  Receive Date: 20171009
  Receipt Date: 20171123
  Transmission Date: 20180321
  Serious: Yes (Other)
  Sender: FDA-Public Use
  Company Number: DE-AUROBINDO-AUR-APL-2017-41416

PATIENT
  Age: 74 Year
  Sex: Female

DRUGS (6)
  1. INDOMETHACIN                       /00003801/ [Suspect]
     Active Substance: INDOMETHACIN
     Dosage: 200 MG, DAILY
  2. MELATONIN [Suspect]
     Active Substance: MELATONIN
     Indication: HEADACHE
     Dosage: 2 MG, UNK
  3. LITHIUM. [Suspect]
     Active Substance: LITHIUM
     Indication: HEADACHE
     Dosage: 900 MG, DAILY
  4. TOPIRAMATE. [Suspect]
     Active Substance: TOPIRAMATE
     Indication: HEADACHE
     Route: 048
  5. FLUNARIZINE [Suspect]
     Active Substance: FLUNARIZINE
     Indication: HEADACHE
     Dosage: 10 MG, DAILY
  6. TAPENTADOL [Suspect]
     Active Substance: TAPENTADOL
     Indication: HEADACHE
     Dosage: 200 MG, DAILY
     Route: 048

REACTIONS (2)
  - Cognitive disorder [Unknown]
  - Drug ineffective [Unknown]
